FAERS Safety Report 5372462-7 (Version None)
Quarter: 2007Q2

REPORT INFORMATION
  Report Type: 
  Country: None (occurrence: None)
  Receive Date: 20070627
  Receipt Date: 20070625
  Transmission Date: 20071010
  Serious: Yes (Hospitalization)
  Sender: FDA-Public Use
  Company Number: HQWYE577216APR07

PATIENT
  Age: 49 Year
  Sex: Female
  Weight: 63.56 kg

DRUGS (7)
  1. PREMPRO [Suspect]
     Indication: MENOPAUSAL SYMPTOMS
     Dosage: 0.625 MG/ 2.5 MG DAILY
     Route: 048
     Dates: start: 20070307, end: 20070317
  2. LEVOTHYROXINE SODIUM [Concomitant]
  3. PRILOSEC [Concomitant]
     Dosage: PRN (DOSE UNSPECIFIED)
  4. LORAZEPAM [Concomitant]
     Dosage: 0.5 MG PRN
  5. VICODIN [Concomitant]
     Dosage: (DOSE UNSPECIFIED) PRN
  6. EFFEXOR XR [Concomitant]
     Dosage: 150 MG (FREQUENCY UNSPECIFIED)
     Route: 048
  7. AMITRIPTYLINE HCL [Concomitant]
     Dosage: 25 MG (FREQUENCY UNSPECIFIED)

REACTIONS (2)
  - TRANSIENT ISCHAEMIC ATTACK [None]
  - URINARY INCONTINENCE [None]
